FAERS Safety Report 17354856 (Version 4)
Quarter: 2023Q1

REPORT INFORMATION
  Report Type: Spontaneous
  Country: US (occurrence: US)
  Receive Date: 20200131
  Receipt Date: 20230217
  Transmission Date: 20230418
  Serious: Yes (Death, Other)
  Sender: FDA-Public Use
  Company Number: US-PFIZER INC-2018022245

PATIENT
  Age: 78 Year
  Sex: Female
  Weight: 70.748 kg

DRUGS (1)
  1. XELJANZ [Suspect]
     Active Substance: TOFACITINIB CITRATE
     Indication: Arthritis
     Dosage: 5 MG, 2X/DAY
     Dates: start: 2017

REACTIONS (3)
  - Death [Fatal]
  - Moaning [Unknown]
  - Malaise [Unknown]

NARRATIVE: CASE EVENT DATE: 20220101
